FAERS Safety Report 6298802-2 (Version None)
Quarter: 2009Q3

REPORT INFORMATION
  Report Type: 
  Country: None (occurrence: None)
  Receive Date: 20090805
  Receipt Date: 20090805
  Transmission Date: 20100115
  Serious: Yes (Other)
  Sender: FDA-Public Use
  Company Number: None

PATIENT
  Age: 69 Year
  Sex: Male
  Weight: 104.3273 kg

DRUGS (1)
  1. JANUVIA [Suspect]
     Indication: BLOOD GLUCOSE INCREASED
     Dosage: 1 TABLET DAILY MOUTH
     Route: 048
     Dates: start: 20090702, end: 20090706

REACTIONS (4)
  - EPISTAXIS [None]
  - HAEMATOCHEZIA [None]
  - HEADACHE [None]
  - MUSCLE SPASMS [None]
